FAERS Safety Report 14505610 (Version 1)
Quarter: 2018Q1

REPORT INFORMATION
  Report Type: Spontaneous
  Country: US (occurrence: US)
  Receive Date: 20180208
  Receipt Date: 20180208
  Transmission Date: 20180509
  Serious: No
  Sender: FDA-Public Use
  Company Number: US-PFIZER INC-2018049565

PATIENT
  Sex: Female

DRUGS (2)
  1. NEURONTIN [Suspect]
     Active Substance: GABAPENTIN
     Dosage: 300 MG, 1X/DAY
  2. NEURONTIN [Suspect]
     Active Substance: GABAPENTIN
     Dosage: 900 MG, 1X/DAY

REACTIONS (3)
  - Confusional state [Unknown]
  - Sciatica [Unknown]
  - Pain [Unknown]
